FAERS Safety Report 4955842-0 (Version None)
Quarter: 2006Q1

REPORT INFORMATION
  Report Type: 
  Country: None (occurrence: None)
  Receive Date: 20060327
  Receipt Date: 20060327
  Transmission Date: 20060701
  Serious: Yes (Death, Life-Threatening, Hospitalization, Disabling, Other)
  Sender: FDA-Public Use
  Company Number: None

PATIENT
  Age: 81 Year
  Sex: Female
  Weight: 81.6475 kg

DRUGS (2)
  1. NATRECOR [Suspect]
     Indication: PROPHYLAXIS
     Dosage: 1 IV
     Route: 042
     Dates: start: 20051117, end: 20051117
  2. NATRECOR [Suspect]
     Indication: RENAL DISORDER
     Dosage: 1 IV
     Route: 042
     Dates: start: 20051117, end: 20051117

REACTIONS (8)
  - AZOTAEMIA [None]
  - BACTERAEMIA [None]
  - CARDIO-RESPIRATORY ARREST [None]
  - DYSKINESIA [None]
  - PERIPHERAL COLDNESS [None]
  - RENAL FAILURE [None]
  - SHOCK [None]
  - SKIN DISCOLOURATION [None]
